FAERS Safety Report 6829548-7 (Version None)
Quarter: 2010Q3

REPORT INFORMATION
  Report Type: 
  Country: None (occurrence: None)
  Receive Date: 20100709
  Receipt Date: 20070404
  Transmission Date: 20110219
  Serious: No
  Sender: FDA-Public Use
  Company Number: US-PFIZER INC-2007007092

PATIENT
  Sex: Male
  Weight: 88.45 kg

DRUGS (7)
  1. CHANTIX [Suspect]
     Indication: SMOKING CESSATION THERAPY
     Dates: start: 20061201
  2. LIPITOR [Concomitant]
  3. PLAVIX [Concomitant]
  4. TAMSULOSIN HCL [Concomitant]
  5. TRUSOPT [Concomitant]
  6. PREVACID [Concomitant]
     Indication: DYSPEPSIA
  7. ACEBUTOLOL [Concomitant]

REACTIONS (5)
  - ASTHENIA [None]
  - DIARRHOEA [None]
  - FEELING ABNORMAL [None]
  - INFLUENZA LIKE ILLNESS [None]
  - WEIGHT INCREASED [None]
